FAERS Safety Report 14202653 (Version 1)
Quarter: 2017Q4

REPORT INFORMATION
  Report Type: Spontaneous
  Country: JP (occurrence: JP)
  Receive Date: 20171118
  Receipt Date: 20171118
  Transmission Date: 20180321
  Serious: Yes (Other)
  Sender: FDA-Public Use
  Company Number: JP-SUN PHARMACEUTICAL INDUSTRIES LTD-2017RR-153370

PATIENT
  Age: 66 Year
  Sex: Female

DRUGS (2)
  1. IMATINIB [Suspect]
     Active Substance: IMATINIB
     Dosage: DECREASED TO 200 MG/DAY
     Route: 065
     Dates: end: 200802
  2. IMATINIB [Suspect]
     Active Substance: IMATINIB
     Indication: METASTASES TO LIVER
     Dosage: 400 MG/DAY
     Route: 065
     Dates: start: 200703

REACTIONS (3)
  - Leukopenia [Unknown]
  - Anaemia [Unknown]
  - Drug ineffective [Unknown]
